FAERS Safety Report 9252469 (Version 1)
Quarter: 2013Q1

REPORT INFORMATION
  Report Type: Spontaneous
  Country: US (occurrence: None)
  Receive Date: 20130305
  Receipt Date: 20130305
  Transmission Date: 20140127
  Serious: Yes (Other)
  Sender: FDA-Public Use
  Company Number: 163-21880-12090646

PATIENT
  Age: 84 Year
  Sex: Female

DRUGS (7)
  1. REVLIMID [Suspect]
     Indication: PLASMA CELL MYELOMA
     Dosage: 08/10/2012 - TEMPORARILY INTERRUPTED, CAPSULE, 10 MG, 21 IN 28 D, PO
  2. PREDNISONE (PREDNISONE) [Concomitant]
  3. ASPIRIN (ACETYLSALICYLIC ACID) [Concomitant]
  4. LIPITOR (ATORVASTATIN) [Concomitant]
  5. LOTREL (LOTREL) [Concomitant]
  6. TRAMADOL (TRAMADOL) [Concomitant]
  7. MELPHALAN [Concomitant]

REACTIONS (4)
  - Full blood count decreased [None]
  - Fatigue [None]
  - Herpes zoster [None]
  - Oedema peripheral [None]
